FAERS Safety Report 18700808 (Version 1)
Quarter: 2021Q1

REPORT INFORMATION
  Report Type: Spontaneous
  Country: US (occurrence: US)
  Receive Date: 20210104
  Receipt Date: 20210104
  Transmission Date: 20210419
  Serious: Yes (Other)
  Sender: FDA-Public Use
  Company Number: None

PATIENT
  Age: 43 Year
  Sex: Male
  Weight: 92.7 kg

DRUGS (7)
  1. LOSARTAN 100 MG [Concomitant]
     Active Substance: LOSARTAN
  2. METOPROLOL ER 50 MG [Concomitant]
  3. PRAVASTATIN 40 MG [Concomitant]
     Active Substance: PRAVASTATIN
  4. GLYCOPYRROLATE 2 MG [Concomitant]
  5. BELSOMRA [Suspect]
     Active Substance: SUVOREXANT
     Indication: INSOMNIA
     Route: 048
     Dates: start: 20201214, end: 20201230
  6. LEVOTHYROXINE 150 MCG [Concomitant]
  7. CHLORTHALIDONE 25 MG [Concomitant]
     Active Substance: CHLORTHALIDONE

REACTIONS (2)
  - Feeling abnormal [None]
  - Hallucination [None]

NARRATIVE: CASE EVENT DATE: 20201230
